FAERS Safety Report 9709670 (Version 3)
Quarter: 2013Q4

REPORT INFORMATION
  Report Type: Spontaneous
  Country: IT (occurrence: IT)
  Receive Date: 20131126
  Receipt Date: 20131209
  Transmission Date: 20140711
  Serious: Yes (Hospitalization)
  Sender: FDA-Public Use
  Company Number: PHHY2013IT134420

PATIENT
  Sex: Female

DRUGS (10)
  1. TAREG [Suspect]
     Indication: HYPERTENSION
     Dosage: 1 DF (160 MG), DAILY
     Route: 048
     Dates: start: 20100101, end: 20131020
  2. ALDACTONE [Suspect]
     Dosage: 1 DF (25 MG), DAILY
     Route: 048
     Dates: start: 20100101, end: 20131020
  3. LASIX [Suspect]
     Dosage: 1 DF (25 MG), DAILY
     Route: 048
     Dates: start: 20100101
  4. LASIX [Suspect]
     Dosage: UNK UKN, UNK
     Dates: start: 20131021, end: 20131112
  5. OMEPRAZOLE [Concomitant]
     Dosage: 20 MG, UNK
     Route: 048
  6. LANOXIN [Concomitant]
     Dosage: 1 DF (0.125 MG), UNK
     Route: 048
  7. DEURSIL [Concomitant]
     Dosage: 1 DF (450 MG), UNK
     Route: 048
  8. CONGESCOR [Concomitant]
     Dosage: 1 DF (1.25 MG), UNK
     Route: 048
  9. COUMADINE [Concomitant]
     Dosage: 1 DF (5 MG), UNK
     Route: 048
  10. FOSTER [Concomitant]
     Dosage: 3 DF (100 MCG OF FORM AND 6 MCG OF BECLO), UNK

REACTIONS (2)
  - Hyponatraemia [Recovered/Resolved]
  - Hyperkalaemia [Recovered/Resolved]
